FAERS Safety Report 5583123-3 (Version None)
Quarter: 2008Q1

REPORT INFORMATION
  Report Type: 
  Country: None (occurrence: None)
  Receive Date: 20080107
  Receipt Date: 20070816
  Transmission Date: 20080703
  Serious: No
  Sender: FDA-Public Use
  Company Number: A0671190A

PATIENT
  Age: 20 Year
  Sex: Male

DRUGS (1)
  1. CIMETIDINE [Suspect]
     Dosage: 300MG PER DAY
     Route: 048
     Dates: start: 20070601, end: 20070601

REACTIONS (2)
  - ABDOMINAL PAIN [None]
  - DIARRHOEA [None]
